FAERS Safety Report 14563205 (Version 2)
Quarter: 2018Q1

REPORT INFORMATION
  Report Type: Spontaneous
  Country: IL (occurrence: IL)
  Receive Date: 20180222
  Receipt Date: 20180226
  Transmission Date: 20180509
  Serious: Yes (Hospitalization, Other)
  Sender: FDA-Public Use
  Company Number: IL-TEVA-2018-IL-859136

PATIENT
  Age: 36 Year
  Sex: Female

DRUGS (1)
  1. TACROLIMUS. [Suspect]
     Active Substance: TACROLIMUS
     Indication: IMMUNOSUPPRESSION
     Route: 065

REACTIONS (7)
  - Normocytic anaemia [Unknown]
  - Klebsiella infection [Unknown]
  - Endocarditis [Unknown]
  - Drug level decreased [Unknown]
  - Transplant rejection [Unknown]
  - Thrombocytopenia [Unknown]
  - Blood creatinine increased [Recovering/Resolving]
